FAERS Safety Report 6382634-0 (Version None)
Quarter: 2009Q3

REPORT INFORMATION
  Report Type: 
  Country: None (occurrence: None)
  Receive Date: 20090928
  Receipt Date: 20090928
  Transmission Date: 20100115
  Serious: Yes (Hospitalization, Other)
  Sender: FDA-Public Use
  Company Number: None

PATIENT
  Age: 68 Year
  Sex: Male
  Weight: 85.2762 kg

DRUGS (1)
  1. LEVAQUIN [Suspect]
     Indication: LOWER RESPIRATORY TRACT INFECTION

REACTIONS (3)
  - CONTUSION [None]
  - HAEMORRHAGE [None]
  - TENDON PAIN [None]
